FAERS Safety Report 7670093-7 (Version None)
Quarter: 2011Q3

REPORT INFORMATION
  Report Type: 
  Country: None (occurrence: None)
  Receive Date: 20110808
  Receipt Date: 20110728
  Transmission Date: 20111222
  Serious: Yes (Other)
  Sender: FDA-Public Use
  Company Number: US-ASTRAZENECA-2011SE42635

PATIENT
  Age: 60 Year
  Sex: Female
  Weight: 97.5 kg

DRUGS (13)
  1. VALIUM [Concomitant]
     Indication: ANXIETY
  2. ASPIRIN [Concomitant]
     Indication: ANTIPLATELET THERAPY
  3. VITAMIN B AND B 12 [Concomitant]
     Indication: VITAMIN SUPPLEMENTATION
     Dosage: DAILY
  4. LACPULOSE [Concomitant]
     Indication: GASTROINTESTINAL DISORDER THERAPY
     Dosage: 6/15 DAILY
  5. PRILOSEC [Concomitant]
     Indication: GASTROOESOPHAGEAL REFLUX DISEASE
     Dosage: UNKNOWN
  6. ZOCOR [Concomitant]
     Indication: HYPERCHOLESTEROLAEMIA
  7. SEROQUEL [Suspect]
     Route: 048
  8. COLACE [Concomitant]
     Indication: GASTROINTESTINAL DISORDER THERAPY
     Dosage: DAILY
  9. SEROQUEL [Suspect]
     Indication: BIPOLAR DISORDER
     Route: 048
     Dates: start: 20101001, end: 20110601
  10. SEROQUEL [Suspect]
     Route: 048
     Dates: start: 20110601
  11. LISINOPRIL [Concomitant]
     Indication: HYPERTENSION
  12. PROZAC [Concomitant]
     Indication: DEPRESSION
  13. AMBIEN [Concomitant]
     Indication: SLEEP APNOEA SYNDROME

REACTIONS (2)
  - CAROTID ARTERY ANEURYSM [None]
  - WEIGHT INCREASED [None]
